FAERS Safety Report 7715799-6 (Version None)
Quarter: 2011Q3

REPORT INFORMATION
  Report Type: 
  Country: None (occurrence: None)
  Receive Date: 20110829
  Receipt Date: 20110829
  Transmission Date: 20111222
  Serious: Yes (Life-Threatening)
  Sender: FDA-Public Use
  Company Number: None

PATIENT
  Sex: Male
  Weight: 68.038 kg

DRUGS (1)
  1. XOLAIR [Suspect]
     Indication: ASTHMA
     Dosage: 375MG
     Route: 058
     Dates: start: 20070219, end: 20110823

REACTIONS (2)
  - ANAPHYLACTIC REACTION [None]
  - TREATMENT NONCOMPLIANCE [None]
